FAERS Safety Report 16579364 (Version 1)
Quarter: 2019Q3

REPORT INFORMATION
  Report Type: Spontaneous
  Country: US (occurrence: US)
  Receive Date: 20190716
  Receipt Date: 20190716
  Transmission Date: 20191004
  Serious: No
  Sender: FDA-Public Use
  Company Number: US-AMAG PHARMACEUTICALS, INC.-AMAG201804580

PATIENT
  Age: 32 Year
  Sex: Female
  Weight: 50 kg

DRUGS (1)
  1. FERAHEME [Suspect]
     Active Substance: FERUMOXYTOL NON-STOICHIOMETRIC MAGNETITE
     Indication: ANAEMIA
     Dosage: 510 MG, SINGLE
     Route: 042
     Dates: start: 20180601, end: 20180601

REACTIONS (4)
  - Back pain [Unknown]
  - Nausea [Unknown]
  - Bronchospasm [Unknown]
  - Cough [Unknown]

NARRATIVE: CASE EVENT DATE: 20180601
